FAERS Safety Report 6856681-6 (Version None)
Quarter: 2010Q3

REPORT INFORMATION
  Report Type: 
  Country: None (occurrence: None)
  Receive Date: 20100716
  Receipt Date: 20100716
  Transmission Date: 20110219
  Serious: Yes (Other)
  Sender: FDA-Public Use
  Company Number: None

PATIENT
  Age: 37 Year
  Sex: Male
  Weight: 113.3993 kg

DRUGS (2)
  1. KERAFOAM 30% ONSET THERAPEUTICS [Suspect]
     Indication: SKIN EXFOLIATION
     Dosage: ONCE DAILY TOP ONCE
     Route: 061
     Dates: start: 20090601, end: 20090601
  2. HYLATOPIC NA ONSET THERAPEUTICS [Suspect]
     Dosage: ONCE
     Dates: start: 20100607, end: 20100607

REACTIONS (3)
  - BURNS THIRD DEGREE [None]
  - INCORRECT ROUTE OF DRUG ADMINISTRATION [None]
  - PRODUCT QUALITY ISSUE [None]
